FAERS Safety Report 16108548 (Version 1)
Quarter: 2019Q1

REPORT INFORMATION
  Report Type: Report from Study
  Country: US (occurrence: US)
  Receive Date: 20190323
  Receipt Date: 20190323
  Transmission Date: 20190418
  Serious: Yes (Hospitalization, Other)
  Sender: FDA-Public Use
  Company Number: US-BRISTOL-MYERS SQUIBB COMPANY-BMS-2019-026447

PATIENT
  Age: 79 Year
  Sex: Male
  Weight: 83.8 kg

DRUGS (1)
  1. NIVOLUMAB [Suspect]
     Active Substance: NIVOLUMAB
     Indication: METASTATIC RENAL CELL CARCINOMA
     Dosage: 480 MILLIGRAM, Q4WK
     Route: 042
     Dates: start: 20190215

REACTIONS (6)
  - Eyelid ptosis [Unknown]
  - Myocarditis [Unknown]
  - Blood creatine phosphokinase increased [Unknown]
  - Myasthenia gravis [Unknown]
  - Myositis [Unknown]
  - Connective tissue disorder [Unknown]

NARRATIVE: CASE EVENT DATE: 20190313
